FAERS Safety Report 6633995-6 (Version None)
Quarter: 2010Q2

REPORT INFORMATION
  Report Type: 
  Country: None (occurrence: None)
  Receive Date: 20100315
  Receipt Date: 20100303
  Transmission Date: 20101027
  Serious: Yes (Hospitalization, Other)
  Sender: FDA-Public Use
  Company Number: PHHY2010BR13187

PATIENT
  Age: 74 Year
  Sex: Male

DRUGS (2)
  1. EXFORGE [Suspect]
     Indication: HYPERTENSION
     Dosage: ONE TABLET DAILY
     Dates: start: 20081114
  2. CLONAZEPAM [Concomitant]
     Indication: SLEEP DISORDER
     Dosage: HALF TABLET BEFORE SLEEP

REACTIONS (7)
  - AGITATION [None]
  - CATHETER PLACEMENT [None]
  - DIZZINESS [None]
  - GASTROINTESTINAL NEOPLASM [None]
  - NASAL POLYPS [None]
  - SOMNOLENCE [None]
  - SURGERY [None]
